FAERS Safety Report 14779716 (Version 1)
Quarter: 2018Q2

REPORT INFORMATION
  Report Type: Spontaneous
  Country: FR (occurrence: FR)
  Receive Date: 20180419
  Receipt Date: 20180419
  Transmission Date: 20180711
  Serious: Yes (Death)
  Sender: FDA-Public Use
  Company Number: FR-PFIZER INC-2018159664

PATIENT
  Age: 61 Year
  Sex: Female

DRUGS (3)
  1. VENLAFAXINE HCL [Suspect]
     Active Substance: VENLAFAXINE HYDROCHLORIDE
     Dosage: UNK
  2. ALPRAZOLAM. [Suspect]
     Active Substance: ALPRAZOLAM
     Dosage: UNK
  3. NOZINAN [Suspect]
     Active Substance: LEVOMEPROMAZINE
     Dosage: UNK

REACTIONS (3)
  - Altered state of consciousness [Fatal]
  - Coma [Fatal]
  - Respiratory depression [Fatal]

NARRATIVE: CASE EVENT DATE: 20170708
